FAERS Safety Report 6176450-2 (Version None)
Quarter: 2009Q2

REPORT INFORMATION
  Report Type: 
  Country: None (occurrence: None)
  Receive Date: 20090501
  Receipt Date: 20090428
  Transmission Date: 20091009
  Serious: Yes (Disabling, Other)
  Sender: FDA-Public Use
  Company Number: US-ASTRAZENECA-2009UW10607

PATIENT
  Age: 43 Year
  Sex: Female

DRUGS (3)
  1. CRESTOR [Suspect]
     Route: 048
     Dates: start: 20070101
  2. CRESTOR [Suspect]
     Route: 048
  3. DIOVAN HCT [Concomitant]
     Dosage: 80 / 12.5

REACTIONS (1)
  - PAIN IN EXTREMITY [None]
